FAERS Safety Report 6906219-X (Version None)
Quarter: 2010Q3

REPORT INFORMATION
  Report Type: 
  Country: None (occurrence: None)
  Receive Date: 20100804
  Receipt Date: 20100727
  Transmission Date: 20110219
  Serious: Yes (Other)
  Sender: FDA-Public Use
  Company Number: GR-AMGEN-KDL418946

PATIENT
  Age: 77 Year
  Sex: Male

DRUGS (3)
  1. VECTIBIX [Suspect]
     Indication: COLORECTAL CANCER
     Dates: start: 20100421
  2. CAMPTOSAR [Suspect]
     Dates: start: 20100421
  3. IRINOTECAN HCL [Suspect]

REACTIONS (8)
  - DIARRHOEA [None]
  - DRUG INTERACTION [None]
  - MOUTH ULCERATION [None]
  - NEUTROPENIA [None]
  - PYREXIA [None]
  - SKIN TOXICITY [None]
  - TUMOUR MARKER TEST [None]
  - WEIGHT DECREASED [None]
